FAERS Safety Report 4816639-5 (Version None)
Quarter: 2005Q4

REPORT INFORMATION
  Report Type: 
  Country: None (occurrence: None)
  Receive Date: 20051031
  Receipt Date: 20051031
  Transmission Date: 20060501
  Serious: Yes (Death, Hospitalization)
  Sender: FDA-Public Use
  Company Number: None

PATIENT
  Sex: Male
  Weight: 64.2 kg

DRUGS (2)
  1. AMIFOSTINE [Suspect]
     Indication: AMYLOIDOSIS
     Dosage: SEE IMAGE
     Dates: start: 20051022, end: 20051022
  2. MELPHALAN [Suspect]
     Dosage: SEE IMAGE
     Dates: start: 20051022

REACTIONS (6)
  - BLOOD PRESSURE IMMEASURABLE [None]
  - CARDIO-RESPIRATORY ARREST [None]
  - HYPOTENSION [None]
  - LOSS OF CONSCIOUSNESS [None]
  - RESPIRATION ABNORMAL [None]
  - VISION BLURRED [None]
